FAERS Safety Report 5324485-1 (Version None)
Quarter: 2007Q2

REPORT INFORMATION
  Report Type: 
  Country: None (occurrence: None)
  Receive Date: 20070508
  Receipt Date: 20070423
  Transmission Date: 20071010
  Serious: Yes (Hospitalization)
  Sender: FDA-Public Use
  Company Number: 2007JP001823

PATIENT
  Age: 91 Year
  Sex: Male

DRUGS (2)
  1. VESICARE [Suspect]
     Indication: POLLAKIURIA
     Dosage: 5 MG, UID/QD, ORAL
     Route: 048
     Dates: start: 20070401, end: 20070418
  2. TAMSULOSIN HCL [Suspect]
     Dosage: 0.2 MG, UID/QD, ORAL
     Route: 048

REACTIONS (1)
  - HYPONATRAEMIA [None]
